FAERS Safety Report 13051021 (Version 26)
Quarter: 2022Q1

REPORT INFORMATION
  Report Type: Spontaneous
  Country: US (occurrence: US)
  Receive Date: 20161221
  Receipt Date: 20220107
  Transmission Date: 20220424
  Serious: Yes (Other)
  Sender: FDA-Public Use
  Company Number: US-PFIZER INC-2016516257

PATIENT
  Age: 60 Year
  Sex: Female
  Weight: 86.18 kg

DRUGS (21)
  1. ARTHROTEC [Suspect]
     Active Substance: DICLOFENAC SODIUM\MISOPROSTOL
     Indication: Arthralgia
     Dosage: UNK, DAILY
     Route: 048
  2. ARTHROTEC [Suspect]
     Active Substance: DICLOFENAC SODIUM\MISOPROSTOL
     Indication: Osteoarthritis
     Dosage: 1 DF, DAILY (1 TABLET OF 200 UG/50 MG, DAILY)
     Route: 048
  3. ARTHROTEC [Suspect]
     Active Substance: DICLOFENAC SODIUM\MISOPROSTOL
     Indication: Arthritis
     Dosage: 1 DF, DAILY (1 TABLET OF 200 UG/75 MG, BEFORE BEDTIME NIGHTLY)
     Route: 048
  4. ARTHROTEC [Suspect]
     Active Substance: DICLOFENAC SODIUM\MISOPROSTOL
     Indication: Rheumatoid arthritis
     Dosage: 1 DF, 2X/DAY (1 TABLET OF 200 UG/50 MG IN AM AND 1 TABLET OF 200 UG/50 MG IN PM)
     Route: 048
  5. ARTHROTEC [Suspect]
     Active Substance: DICLOFENAC SODIUM\MISOPROSTOL
     Dosage: 1 DF, 2X/DAY (1 TABLET OF 200 UG/50 MG, TWO TIMES A DAY)
     Route: 048
  6. ARTHROTEC [Suspect]
     Active Substance: DICLOFENAC SODIUM\MISOPROSTOL
     Dosage: 1 DF, 1X/DAY (1 TABLET OF 200 UG/50 MG, Q DAY (ONCE A DAY)
     Route: 048
  7. ARTHROTEC [Suspect]
     Active Substance: DICLOFENAC SODIUM\MISOPROSTOL
     Dosage: 1 DF, 1X/DAY (200UG/50 MG, 1X/DAY (1 TABLET AT NIGHT)
     Route: 048
  8. ARTHROTEC [Suspect]
     Active Substance: DICLOFENAC SODIUM\MISOPROSTOL
     Dosage: 75 MG, 1X/DAY (75 MG, 1X/DAY(75MG TABLET, 1 TABLET DURING THE DAY)
     Route: 048
  9. ARTHROTEC [Suspect]
     Active Substance: DICLOFENAC SODIUM\MISOPROSTOL
     Dosage: 1 DF, 2X/DAY (50-200 MG-MCG PER TABLET)
     Route: 048
  10. ARTHROTEC [Suspect]
     Active Substance: DICLOFENAC SODIUM\MISOPROSTOL
     Dosage: 1 DF, 1X/DAY (75-200 MG-MCG PER TABLET; 1 TABLET BY MOUTH NIGHTLY)
     Route: 048
  11. ARTHROTEC [Suspect]
     Active Substance: DICLOFENAC SODIUM\MISOPROSTOL
     Dosage: 75 MG, 2X/DAY
     Route: 048
  12. ARTHROTEC [Suspect]
     Active Substance: DICLOFENAC SODIUM\MISOPROSTOL
     Dosage: 125 MG (ACTUALLY TAKES 75 MG AND 50 MG /TAKING 50MG AT NIGHT AND 75MG IN THE MORNING)
  13. ARTHROTEC [Suspect]
     Active Substance: DICLOFENAC SODIUM\MISOPROSTOL
     Dosage: 50 MG, 1X/DAY
     Route: 048
  14. ARTHROTEC [Suspect]
     Active Substance: DICLOFENAC SODIUM\MISOPROSTOL
     Dosage: 75 MG, 2X/DAY
     Route: 048
  15. ARTHROTEC [Suspect]
     Active Substance: DICLOFENAC SODIUM\MISOPROSTOL
     Dosage: 1X75 MG-200 MCG TABLET AND 1X50 MG-200 MCG TABLET EVERY DAY
     Route: 048
  16. ARTHROTEC [Suspect]
     Active Substance: DICLOFENAC SODIUM\MISOPROSTOL
     Dosage: UNK
  17. AMLODIPINE [Concomitant]
     Active Substance: AMLODIPINE BESYLATE
     Dosage: UNK
  18. TOPROL XL [Concomitant]
     Active Substance: METOPROLOL SUCCINATE
     Dosage: UNK
  19. HYZAAR [Concomitant]
     Active Substance: HYDROCHLOROTHIAZIDE\LOSARTAN POTASSIUM
     Dosage: UNK
  20. LYRICA [Concomitant]
     Active Substance: PREGABALIN
     Indication: Neuralgia
     Dosage: 75 MG, 2X/DAY
     Route: 048
     Dates: start: 2017
  21. PRAVASTATIN [Concomitant]
     Active Substance: PRAVASTATIN
     Dosage: UNK

REACTIONS (13)
  - Gastric ulcer [Recovered/Resolved]
  - Drug ineffective [Unknown]
  - Transcription medication error [Unknown]
  - Intentional product use issue [Unknown]
  - Product dispensing error [Unknown]
  - Underdose [Unknown]
  - Gait disturbance [Unknown]
  - Enuresis [Unknown]
  - Dyskinesia [Unknown]
  - Impaired quality of life [Unknown]
  - Therapeutic response unexpected [Unknown]
  - Abdominal discomfort [Unknown]
  - Pain [Unknown]
